FAERS Safety Report 14505001 (Version 1)
Quarter: 2018Q1

REPORT INFORMATION
  Report Type: Spontaneous
  Country: US (occurrence: US)
  Receive Date: 20180208
  Receipt Date: 20180208
  Transmission Date: 20180509
  Serious: No
  Sender: FDA-Public Use
  Company Number: US-JNJFOC-20171234668

PATIENT
  Age: 78 Year
  Sex: Female

DRUGS (7)
  1. FLOVENT HFA [Concomitant]
     Active Substance: FLUTICASONE PROPIONATE
  2. SIMVASTATIN. [Concomitant]
     Active Substance: SIMVASTATIN
  3. FELODIPINE. [Concomitant]
     Active Substance: FELODIPINE
  4. IMBRUVICA [Suspect]
     Active Substance: IBRUTINIB
     Indication: CHRONIC LYMPHOCYTIC LEUKAEMIA
     Route: 048
     Dates: start: 20170612, end: 20171030
  5. LEVOTHYROXINE. [Concomitant]
     Active Substance: LEVOTHYROXINE
  6. ASPIRIN. [Concomitant]
     Active Substance: ASPIRIN
  7. CARVEDILOL. [Concomitant]
     Active Substance: CARVEDILOL

REACTIONS (2)
  - Off label use [Unknown]
  - Inappropriate schedule of drug administration [Unknown]

NARRATIVE: CASE EVENT DATE: 20170612
